FAERS Safety Report 14720642 (Version 1)
Quarter: 2018Q2

REPORT INFORMATION
  Report Type: Spontaneous
  Country: FR (occurrence: FR)
  Receive Date: 20180405
  Receipt Date: 20180405
  Transmission Date: 20180711
  Serious: Yes (Hospitalization)
  Sender: FDA-Public Use
  Company Number: FR-MYLANLABS-2018M1021067

PATIENT
  Age: 64 Year
  Sex: Female

DRUGS (1)
  1. PACLITAXEL. [Suspect]
     Active Substance: PACLITAXEL
     Indication: NEOPLASM MALIGNANT
     Dosage: UNK
     Route: 042

REACTIONS (1)
  - Acute generalised exanthematous pustulosis [Not Recovered/Not Resolved]

NARRATIVE: CASE EVENT DATE: 201711
